FAERS Safety Report 6014496-5 (Version None)
Quarter: 2008Q4

REPORT INFORMATION
  Report Type: 
  Country: None (occurrence: None)
  Receive Date: 20081219
  Receipt Date: 20080728
  Transmission Date: 20090506
  Serious: No
  Sender: FDA-Public Use
  Company Number: A0738633A

PATIENT
  Age: 57 Year
  Sex: Male
  Weight: 76.4 kg

DRUGS (1)
  1. AVODART [Suspect]
     Route: 048

REACTIONS (1)
  - MUSCLE SPASMS [None]
